FAERS Safety Report 13931303 (Version 4)
Quarter: 2019Q1

REPORT INFORMATION
  Report Type: Report from Study
  Country: US (occurrence: US)
  Receive Date: 20170903
  Receipt Date: 20190108
  Transmission Date: 20190417
  Serious: Yes (Other)
  Sender: FDA-Public Use
  Company Number: PHEH2017US027861

PATIENT
  Sex: Female

DRUGS (2)
  1. AFINITOR [Suspect]
     Active Substance: EVEROLIMUS
     Indication: ANGIOMYOLIPOMA
     Dosage: 10 MG, UNK M-F
     Route: 048
     Dates: start: 20131005
  2. AFINITOR [Suspect]
     Active Substance: EVEROLIMUS
     Dosage: 10 MG, QD
     Route: 048
     Dates: start: 20190104

REACTIONS (6)
  - Renal impairment [Not Recovered/Not Resolved]
  - Blood urea increased [Unknown]
  - Glomerular filtration rate decreased [Recovering/Resolving]
  - Neoplasm skin [Recovering/Resolving]
  - Blood creatinine decreased [Unknown]
  - Protein urine present [Not Recovered/Not Resolved]
